FAERS Safety Report 16586287 (Version 1)
Quarter: 2019Q3

REPORT INFORMATION
  Report Type: Spontaneous
  Country: GB (occurrence: GB)
  Receive Date: 20190717
  Receipt Date: 20190717
  Transmission Date: 20191004
  Serious: Yes (Other)
  Sender: FDA-Public Use
  Company Number: GB-MYLANLABS-2019M1066057

PATIENT
  Sex: Male

DRUGS (3)
  1. CLOZARIL [Suspect]
     Active Substance: CLOZAPINE
     Indication: SCHIZOPHRENIA
     Dosage: UNK
     Route: 048
     Dates: start: 20151208
  2. CLOZARIL [Suspect]
     Active Substance: CLOZAPINE
     Dosage: 750 MILLIGRAM
     Route: 048
  3. CLOZARIL [Suspect]
     Active Substance: CLOZAPINE
     Dosage: 2800 MILLIGRAM
     Route: 048
     Dates: start: 201907

REACTIONS (5)
  - Extra dose administered [Unknown]
  - Hallucination [Unknown]
  - Respiratory depression [Unknown]
  - Extrapyramidal disorder [Unknown]
  - Lethargy [Unknown]

NARRATIVE: CASE EVENT DATE: 201907
